FAERS Safety Report 10453717 (Version 1)
Quarter: 2014Q3

REPORT INFORMATION
  Report Type: Spontaneous
  Country: US (occurrence: US)
  Receive Date: 20140915
  Receipt Date: 20140915
  Transmission Date: 20150326
  Serious: No
  Sender: FDA-Public Use
  Company Number: US-PFIZER INC-2014251741

PATIENT
  Age: 67 Year
  Sex: Male
  Weight: 99.77 kg

DRUGS (14)
  1. LYRICA [Interacting]
     Active Substance: PREGABALIN
     Dosage: 300 MG, 3X/DAY
  2. OXYBUTIN [Concomitant]
     Active Substance: OXYBUTYNIN
     Indication: BLADDER DISORDER
     Dosage: 10 MG, DAILY [AT 8AM]
  3. FLOWMAX [Concomitant]
     Indication: DYSURIA
     Dosage: 0.4 MG, DAILY [AT 8AM]
  4. AMLODIPINE [Concomitant]
     Active Substance: AMLODIPINE BESYLATE
     Dosage: 5 MG, DAILY [AT 8AM]
  5. LYRICA [Suspect]
     Active Substance: PREGABALIN
     Indication: TRIGEMINAL NEURALGIA
     Dosage: 750 MG, UNK
  6. METOPROLOL [Concomitant]
     Active Substance: METOPROLOL
     Indication: BLOOD PRESSURE ABNORMAL
     Dosage: 100 MG, DAILY [AT 8AM]
  7. BACLOFEN. [Concomitant]
     Active Substance: BACLOFEN
     Indication: BLADDER DISORDER
     Dosage: 10 MG, 3X/DAY [AT 8AM, 2PM AND10PM]
  8. REBIF [Concomitant]
     Active Substance: INTERFERON BETA-1A
     Indication: MULTIPLE SCLEROSIS
     Dosage: 44MCQ, 3X/WEEK
  9. LISINOPRIL. [Concomitant]
     Active Substance: LISINOPRIL
     Dosage: 40 MG, DAILY [AT 8AM]
  10. PLAVIX [Concomitant]
     Active Substance: CLOPIDOGREL BISULFATE
     Indication: CARDIAC DISORDER
     Dosage: 75 MG, DAILY [AT 8AM]
  11. PRAVASTATIN [Concomitant]
     Active Substance: PRAVASTATIN\PRAVASTATIN SODIUM
     Dosage: 80 MG, DAILY [AT BED TIME AT 8PM]
  12. OXCARBAZEPINE. [Interacting]
     Active Substance: OXCARBAZEPINE
     Indication: TRIGEMINAL NEURALGIA
     Dosage: 150 MG, 3X/DAY
  13. DOCUSATE [Concomitant]
     Active Substance: DOCUSATE
     Indication: FAECES SOFT
     Dosage: 100 MG, DAILY
  14. ALBUTEROL. [Concomitant]
     Active Substance: ALBUTEROL
     Dosage: [TWO PUFFS], AS NEEDED

REACTIONS (5)
  - Mental status changes [Not Recovered/Not Resolved]
  - Hallucination [Unknown]
  - Pain [Unknown]
  - Drug interaction [Unknown]
  - Intentional product misuse [Unknown]

NARRATIVE: CASE EVENT DATE: 2014
